FAERS Safety Report 17774374 (Version 2)
Quarter: 2020Q3

REPORT INFORMATION
  Report Type: Report from Study
  Country: BR (occurrence: BR)
  Receive Date: 20200513
  Receipt Date: 20200518
  Transmission Date: 20201104
  Serious: Yes (Other)
  Sender: FDA-Public Use
  Company Number: NVSC2020BR128213

PATIENT
  Age: 71 Year
  Sex: Female
  Weight: 60 kg

DRUGS (4)
  1. XOLAIR [Suspect]
     Active Substance: OMALIZUMAB
     Indication: ANGIOEDEMA
     Dosage: UNK
     Route: 065
     Dates: start: 20200407
  2. CYCLOSPORINE. [Suspect]
     Active Substance: CYCLOSPORINE
     Indication: PRODUCT USED FOR UNKNOWN INDICATION
     Dosage: (USED FOR 3 YEARS)
     Route: 065
  3. XOLAIR [Suspect]
     Active Substance: OMALIZUMAB
     Indication: CHRONIC SPONTANEOUS URTICARIA
     Dosage: UNK UNK, QMO (2 AMPOULES)
     Route: 058
     Dates: start: 20190409
  4. XOLAIR [Suspect]
     Active Substance: OMALIZUMAB
     Indication: URTICARIA
     Dosage: UNK
     Route: 065

REACTIONS (10)
  - Renal disorder [Unknown]
  - Urticaria [Recovered/Resolved]
  - Face oedema [Unknown]
  - Deformity [Recovered/Resolved]
  - Visual impairment [Not Recovered/Not Resolved]
  - Angioedema [Recovered/Resolved]
  - Blood pressure abnormal [Unknown]
  - Oedema mouth [Unknown]
  - Swelling face [Recovered/Resolved]
  - Product use in unapproved indication [Unknown]

NARRATIVE: CASE EVENT DATE: 201812
